FAERS Safety Report 10846899 (Version 1)
Quarter: 2015Q1

REPORT INFORMATION
  Report Type: Spontaneous
  Country: US (occurrence: US)
  Receive Date: 20150220
  Receipt Date: 20150220
  Transmission Date: 20150721
  Serious: No
  Sender: FDA-Public Use
  Company Number: US-B.I. PHARMACEUTICALS,INC./RIDGEFIELD-2015-BI-07064BP

PATIENT
  Age: 53 Year
  Sex: Female
  Weight: 77.11 kg

DRUGS (2)
  1. MELOXICAM. [Suspect]
     Active Substance: MELOXICAM
     Indication: TENDONITIS
     Route: 048
     Dates: start: 201405, end: 201405
  2. BACTRIM [Concomitant]
     Active Substance: SULFAMETHOXAZOLE\TRIMETHOPRIM
     Indication: ACNE
     Route: 048

REACTIONS (6)
  - Faeces discoloured [Recovered/Resolved]
  - Rash [Recovered/Resolved]
  - Off label use [Recovered/Resolved]
  - Vomiting [Recovered/Resolved]
  - Chromaturia [Recovered/Resolved]
  - Diarrhoea [Recovered/Resolved]

NARRATIVE: CASE EVENT DATE: 201405
